FAERS Safety Report 25474507 (Version 2)
Quarter: 2025Q3

REPORT INFORMATION
  Report Type: Spontaneous
  Country: EU (occurrence: EU)
  Receive Date: 20250624
  Receipt Date: 20250722
  Transmission Date: 20251021
  Serious: Yes (Other)
  Sender: BAUSCH AND LOMB
  Company Number: EU-ROCHE-10000119303

PATIENT
  Age: 33 Year
  Sex: Male

DRUGS (13)
  1. DEXAMETHASONE [Suspect]
     Active Substance: DEXAMETHASONE
     Indication: Adult T-cell lymphoma/leukaemia stage IV
     Route: 065
  2. DEXAMETHASONE [Suspect]
     Active Substance: DEXAMETHASONE
     Indication: Haemophagocytic lymphohistiocytosis
     Route: 065
  3. TOCILIZUMAB [Suspect]
     Active Substance: TOCILIZUMAB
     Indication: Haemophagocytic lymphohistiocytosis
     Route: 065
  4. RITUXIMAB [Suspect]
     Active Substance: RITUXIMAB
     Indication: Adult T-cell lymphoma/leukaemia stage IV
     Route: 065
  5. CYTARABINE [Suspect]
     Active Substance: CYTARABINE
     Indication: Adult T-cell lymphoma/leukaemia stage IV
     Route: 065
  6. CISPLATIN [Suspect]
     Active Substance: CISPLATIN
     Indication: Adult T-cell lymphoma/leukaemia stage IV
     Route: 065
  7. FLUDARABINE [Concomitant]
     Active Substance: FLUDARABINE PHOSPHATE
     Indication: Adult T-cell lymphoma/leukaemia stage IV
  8. PREDNISONE [Concomitant]
     Active Substance: PREDNISONE
     Indication: Adult T-cell lymphoma/leukaemia stage IV
     Route: 065
  9. ETOPOSIDE [Concomitant]
     Active Substance: ETOPOSIDE
     Indication: Adult T-cell lymphoma/leukaemia stage IV
     Route: 065
  10. CYCLOPHOSPHAMIDE [Concomitant]
     Active Substance: CYCLOPHOSPHAMIDE
     Indication: Adult T-cell lymphoma/leukaemia stage IV
  11. CYCLOPHOSPHAMIDE [Concomitant]
     Active Substance: CYCLOPHOSPHAMIDE
  12. PROCARBAZINE [Concomitant]
     Active Substance: PROCARBAZINE
     Indication: Adult T-cell lymphoma/leukaemia stage IV
     Route: 048
  13. AXICABTAGENE CILOLEUCEL [Concomitant]
     Active Substance: AXICABTAGENE CILOLEUCEL
     Indication: Adult T-cell lymphoma/leukaemia stage IV

REACTIONS (2)
  - Therapy partial responder [Unknown]
  - Therapy non-responder [Unknown]
